FAERS Safety Report 12162186 (Version 1)
Quarter: 2016Q1

REPORT INFORMATION
  Report Type: Spontaneous
  Country: US (occurrence: None)
  Receive Date: 20160308
  Receipt Date: 20160308
  Transmission Date: 20160526
  Serious: Yes (Hospitalization)
  Sender: FDA-Public Use
  Company Number: None

PATIENT
  Age: 93 Year
  Sex: Female
  Weight: 53.3 kg

DRUGS (17)
  1. ISORDIL [Concomitant]
     Active Substance: ISOSORBIDE DINITRATE
  2. BENTYL [Concomitant]
     Active Substance: DICYCLOMINE HYDROCHLORIDE
  3. FE [Concomitant]
     Active Substance: IRON
  4. KLOR-CON [Suspect]
     Active Substance: POTASSIUM CHLORIDE
     Indication: MINERAL SUPPLEMENTATION
     Dosage: 20MEQ ? PO?CHRONIC
     Route: 048
  5. MAG HYDROX [Concomitant]
  6. ASA [Concomitant]
     Active Substance: ASPIRIN
  7. FOLVITE [Concomitant]
     Active Substance: FOLIC ACID
  8. PRILOSEC [Concomitant]
     Active Substance: OMEPRAZOLE MAGNESIUM
  9. ZOCOR [Concomitant]
     Active Substance: SIMVASTATIN
  10. LISINOPRIL. [Suspect]
     Active Substance: LISINOPRIL
     Indication: HYPERTENSION
     Dosage: CHRONIC
     Route: 048
  11. CALCITONIN [Concomitant]
     Active Substance: CALCITONIN
  12. VTI D3 [Concomitant]
  13. ZESTRIL [Concomitant]
     Active Substance: LISINOPRIL
  14. COREG [Concomitant]
     Active Substance: CARVEDILOL
  15. VITAMIN B12 [Concomitant]
     Active Substance: CYANOCOBALAMIN
  16. LASIX [Concomitant]
     Active Substance: FUROSEMIDE
  17. NAMENDA [Concomitant]
     Active Substance: MEMANTINE HYDROCHLORIDE

REACTIONS (2)
  - Cardiac failure congestive [None]
  - Hyperkalaemia [None]

NARRATIVE: CASE EVENT DATE: 20151101
